FAERS Safety Report 9554984 (Version 1)
Quarter: 2013Q3

REPORT INFORMATION
  Report Type: Spontaneous
  Country: US (occurrence: None)
  Receive Date: 20130925
  Receipt Date: 20130925
  Transmission Date: 20140515
  Serious: Yes (Death)
  Sender: FDA-Public Use
  Company Number: None

PATIENT
  Age: 85 Year
  Sex: Male
  Weight: 61.24 kg

DRUGS (1)
  1. LEVETIRACETAM 500 MG [Suspect]
     Dosage: 1 PILL
     Route: 048
     Dates: start: 20120605, end: 20120917

REACTIONS (7)
  - Anxiety [None]
  - Anger [None]
  - Convulsion [None]
  - Anger [None]
  - Completed suicide [None]
  - Gun shot wound [None]
  - Chest injury [None]
